FAERS Safety Report 8496222-3 (Version None)
Quarter: 2012Q3

REPORT INFORMATION
  Report Type: 
  Country: None (occurrence: None)
  Receive Date: 20120709
  Receipt Date: 20120628
  Transmission Date: 20120928
  Serious: Yes (Hospitalization)
  Sender: FDA-Public Use
  Company Number: KR-NOVOPROD-354998

PATIENT
  Age: 36 Year
  Sex: Female

DRUGS (1)
  1. NOVOMIX 30 FLEXPEN [Suspect]
     Indication: GESTATIONAL DIABETES

REACTIONS (3)
  - MATERNAL EXPOSURE DURING PREGNANCY [None]
  - PANCREATITIS ACUTE [None]
  - KETOACIDOSIS [None]
